FAERS Safety Report 4653190-X (Version None)
Quarter: 2005Q2

REPORT INFORMATION
  Report Type: 
  Country: None (occurrence: None)
  Receive Date: 20050503
  Receipt Date: 20050425
  Transmission Date: 20051028
  Serious: Yes (Other)
  Sender: FDA-Public Use
  Company Number: S05-USA-00987-01

PATIENT
  Age: 26 Year
  Sex: Female

DRUGS (2)
  1. LEXAPRO [Suspect]
     Indication: DEPRESSION
     Dates: start: 20050101, end: 20050223
  2. ULTRAM [Suspect]
     Indication: BACK PAIN

REACTIONS (6)
  - CONVULSION [None]
  - FOAMING AT MOUTH [None]
  - LETHARGY [None]
  - LOSS OF CONSCIOUSNESS [None]
  - ROAD TRAFFIC ACCIDENT [None]
  - SELF-MEDICATION [None]
